FAERS Safety Report 18565256 (Version 1)
Quarter: 2020Q4

REPORT INFORMATION
  Report Type: Spontaneous
  Country: CN (occurrence: CN)
  Receive Date: 20201201
  Receipt Date: 20201201
  Transmission Date: 20210114
  Serious: Yes (Other)
  Sender: FDA-Public Use
  Company Number: CN-FRESENIUS KABI-FK202012652

PATIENT
  Age: 86 Year
  Sex: Male

DRUGS (5)
  1. TIGECYCLINE (MANUFACTURER UNKNOWN) [Suspect]
     Active Substance: TIGECYCLINE
     Route: 065
  2. TIGECYCLINE (MANUFACTURER UNKNOWN) [Suspect]
     Active Substance: TIGECYCLINE
     Indication: PNEUMONIA ACINETOBACTER
     Dosage: LOADING DOSE
     Route: 065
  3. CEFOPERAZONE/SULBACTAM [Concomitant]
     Active Substance: CEFOPERAZONE\SULBACTAM
     Route: 065
  4. TIGECYCLINE (MANUFACTURER UNKNOWN) [Suspect]
     Active Substance: TIGECYCLINE
     Route: 065
  5. CEFOPERAZONE/SULBACTAM [Concomitant]
     Active Substance: CEFOPERAZONE\SULBACTAM
     Indication: PNEUMONIA ACINETOBACTER
     Route: 065

REACTIONS (3)
  - Off label use [Recovered/Resolved]
  - Coagulopathy [Recovered/Resolved]
  - Hypofibrinogenaemia [Recovered/Resolved]
